FAERS Safety Report 9122932 (Version 1)
Quarter: 2013Q1

REPORT INFORMATION
  Report Type: Spontaneous
  Country: US (occurrence: US)
  Receive Date: 20130227
  Receipt Date: 20130227
  Transmission Date: 20140127
  Serious: No
  Sender: FDA-Public Use
  Company Number: US-GLAXOSMITHKLINE-A0988791A

PATIENT
  Age: 61 Year
  Sex: Female

DRUGS (6)
  1. VALTREX [Suspect]
     Indication: IMMUNOSUPPRESSANT DRUG THERAPY
     Dosage: 500MG TWICE PER DAY
     Route: 048
  2. ACIPHEX [Concomitant]
  3. LUMIGAN [Concomitant]
  4. FISH OIL [Concomitant]
  5. SUPPLEMENT [Concomitant]
     Indication: PRODUCT USED FOR UNKNOWN INDICATION
  6. FLEXERIL [Concomitant]

REACTIONS (1)
  - Herpes virus infection [Unknown]
